FAERS Safety Report 23977370 (Version 1)
Quarter: 2024Q2

REPORT INFORMATION
  Report Type: Spontaneous
  Country: US (occurrence: US)
  Receive Date: 20240614
  Receipt Date: 20240614
  Transmission Date: 20240716
  Serious: Yes (Other)
  Sender: FDA-Public Use
  Company Number: US-ELI_LILLY_AND_COMPANY-US202406001886

PATIENT
  Age: 62 Year
  Sex: Female

DRUGS (1)
  1. VERZENIO [Suspect]
     Active Substance: ABEMACICLIB
     Indication: Breast cancer female
     Dosage: 1 DOSAGE FORM, BID (EACH TABLET)
     Route: 048
     Dates: start: 20240419

REACTIONS (4)
  - Hepatic cirrhosis [Unknown]
  - Abdominal pain upper [Unknown]
  - Peripheral coldness [Unknown]
  - Neutrophil count decreased [Unknown]
